FAERS Safety Report 5156619-6 (Version None)
Quarter: 2006Q4

REPORT INFORMATION
  Report Type: 
  Country: None (occurrence: None)
  Receive Date: 20061115
  Receipt Date: 20061031
  Transmission Date: 20070319
  Serious: Yes (Other)
  Sender: FDA-Public Use
  Company Number: 430004M06GBR

PATIENT
  Sex: Female

DRUGS (1)
  1. NOVANTRONE [Suspect]
     Dates: start: 20060927

REACTIONS (1)
  - CYSTITIS HAEMORRHAGIC [None]
